FAERS Safety Report 7931340-7 (Version None)
Quarter: 2011Q4

REPORT INFORMATION
  Report Type: 
  Country: None (occurrence: None)
  Receive Date: 20111121
  Receipt Date: 20111116
  Transmission Date: 20120403
  Serious: Yes (Hospitalization, Other)
  Sender: FDA-Public Use
  Company Number: US-PFIZER INC-2011169440

PATIENT
  Sex: Female
  Weight: 81.18 kg

DRUGS (5)
  1. SULFAMETHOXAZOLE AND TRIMETHOPRIM [Interacting]
     Indication: CYSTITIS
     Dosage: UNK
  2. KEPPRA [Suspect]
     Indication: CONVULSION
     Dosage: UNK
  3. DILANTIN [Interacting]
     Indication: GRAND MAL CONVULSION
     Dosage: UNK
     Route: 048
     Dates: start: 19640101
  4. DILANTIN [Interacting]
     Indication: PETIT MAL EPILEPSY
  5. PHENOBARBITAL TAB [Suspect]
     Indication: CONVULSION
     Dosage: UNK

REACTIONS (4)
  - CONVULSION [None]
  - FEELING ABNORMAL [None]
  - DRUG INTERACTION [None]
  - CYSTITIS [None]
